FAERS Safety Report 6566493-9 (Version None)
Quarter: 2010Q1

REPORT INFORMATION
  Report Type: 
  Country: None (occurrence: None)
  Receive Date: 20100128
  Receipt Date: 20090806
  Transmission Date: 20100710
  Serious: Yes (Death)
  Sender: FDA-Public Use
  Company Number: 2009VX001412

PATIENT
  Age: 54 Year
  Sex: Male

DRUGS (7)
  1. ANCOBON [Suspect]
     Indication: DISSEMINATED CRYPTOCOCCOSIS
  2. FLUCONAZOLE [Suspect]
     Indication: DISSEMINATED CRYPTOCOCCOSIS
  3. AMPHOTERICIN B [Suspect]
     Indication: DISSEMINATED CRYPTOCOCCOSIS
  4. TACROLIMUS [Concomitant]
  5. MYCOPHENOLATE MOFETIL [Concomitant]
  6. ACYCLOVIR [Concomitant]
  7. SULFAMETHOXAZOLE AND TRIMETHOPRIM [Concomitant]

REACTIONS (1)
  - DRUG INEFFECTIVE [None]
